FAERS Safety Report 6646607-2 (Version None)
Quarter: 2010Q1

REPORT INFORMATION
  Report Type: 
  Country: None (occurrence: None)
  Receive Date: 20100317
  Receipt Date: 20100303
  Transmission Date: 20100710
  Serious: Yes (Disabling, Other)
  Sender: FDA-Public Use
  Company Number: 2009-200158-NL

PATIENT
  Age: 32 Year
  Sex: Female
  Weight: 95.2554 kg

DRUGS (15)
  1. NUVARING [Suspect]
     Indication: CONTRACEPTION
  2. DROSPIRENONE AND ETHINYL ESTRADIOL [Suspect]
     Indication: DRUG USE FOR UNKNOWN INDICATION
  3. TYLENOL-500 [Concomitant]
  4. NAPROXEN [Concomitant]
  5. MAXALT [Concomitant]
  6. FIORICET [Concomitant]
  7. AMITRIPTYLINE HCL [Concomitant]
  8. MONETASONE FUROATE [Concomitant]
  9. PROPRANOLOL HYDROCHLORIDE [Concomitant]
  10. SERTRALINE HCL [Concomitant]
  11. AZELASTINE HCL [Concomitant]
  12. ELETRIPTAN HYDROBROMIDE [Concomitant]
  13. ACETAMINOPHEN AND HYDROCODONE BITARTRATE [Concomitant]
  14. FROVA [Concomitant]
  15. ERYTHROMYCIN [Concomitant]

REACTIONS (28)
  - ABDOMINAL PAIN [None]
  - APHONIA [None]
  - ARRHYTHMIA [None]
  - BODY TEMPERATURE DECREASED [None]
  - BODY TEMPERATURE INCREASED [None]
  - CHEST PAIN [None]
  - CROHN'S DISEASE [None]
  - DIZZINESS [None]
  - DYSPAREUNIA [None]
  - DYSPNOEA [None]
  - EAR PAIN [None]
  - HEART RATE IRREGULAR [None]
  - INTERVERTEBRAL DISC DEGENERATION [None]
  - INTERVERTEBRAL DISC PROTRUSION [None]
  - JAUNDICE [None]
  - LARYNGITIS [None]
  - LIVER DISORDER [None]
  - MIGRAINE [None]
  - MULTIPLE ALLERGIES [None]
  - MUSCULOSKELETAL DISORDER [None]
  - NAUSEA [None]
  - OEDEMA PERIPHERAL [None]
  - OROPHARYNGEAL PAIN [None]
  - PAIN IN EXTREMITY [None]
  - PALPITATIONS [None]
  - PHOTOPHOBIA [None]
  - POST-TRAUMATIC PAIN [None]
  - VOMITING [None]
